FAERS Safety Report 25928077 (Version 3)
Quarter: 2025Q4

REPORT INFORMATION
  Report Type: Spontaneous
  Country: US (occurrence: US)
  Receive Date: 20251016
  Receipt Date: 20251120
  Transmission Date: 20260117
  Serious: No
  Sender: TOLMAR
  Company Number: US-Tolmar-TLM-2025-07341

PATIENT

DRUGS (3)
  1. ELIGARD [Suspect]
     Active Substance: LEUPROLIDE ACETATE
     Indication: Product used for unknown indication
     Dosage: EXPIRATION DATE: OCT-2026; SEP-2026; 30-SEP-2026
     Route: 065
  2. ELIGARD [Suspect]
     Active Substance: LEUPROLIDE ACETATE
     Dosage: REPLACEMENT DOSE
     Route: 065
  3. DEVICE [Suspect]
     Active Substance: DEVICE
     Indication: Product used for unknown indication
     Dosage: EXPIRATION DATE: OCT-2026; SEP-2026; 30-SEP-2026

REACTIONS (3)
  - Intercepted product preparation error [Unknown]
  - Device issue [Unknown]
  - Device leakage [Unknown]
